FAERS Safety Report 8072534-2 (Version None)
Quarter: 2012Q1

REPORT INFORMATION
  Report Type: 
  Country: None (occurrence: None)
  Receive Date: 20120126
  Receipt Date: 20120120
  Transmission Date: 20120608
  Serious: Yes (Hospitalization, Other)
  Sender: FDA-Public Use
  Company Number: DE-PFIZER INC-2010124597

PATIENT
  Age: 58 Year
  Sex: Male
  Weight: 96 kg

DRUGS (10)
  1. AMLODIPINE BESYLATE [Suspect]
     Indication: HYPERTENSION
     Dosage: 5 MG, 1X/DAY
     Route: 048
     Dates: start: 20080501, end: 20080804
  2. FUROSEMIDE [Suspect]
     Indication: HYPERTENSION
     Dosage: 40 MG, 1X/DAY
     Route: 048
     Dates: start: 20080601, end: 20080803
  3. RAMIPRIL [Suspect]
     Dosage: 15 MG, 1X/DAY
     Route: 048
     Dates: start: 20080601, end: 20080803
  4. RAMIPRIL [Suspect]
     Dosage: 2.5 MG, 1X/DAY
     Route: 048
     Dates: start: 20080804
  5. SIMVASTATIN [Concomitant]
     Indication: HYPERLIPIDAEMIA
     Dosage: 40 MG, 1X/DAY
     Route: 048
     Dates: start: 20070101
  6. HYDROCHLOROTHIAZIDE [Suspect]
     Indication: HYPERTENSION
     Dosage: 12.5 MG, 1X/DAY
     Route: 048
     Dates: start: 20070104, end: 20080804
  7. BISOPROLOL FUMARATE [Suspect]
     Indication: CORONARY ARTERY DISEASE
     Dosage: 5 MG, 2X/DAY
     Route: 048
     Dates: start: 20070101
  8. ASPIRIN [Concomitant]
     Indication: CORONARY ARTERY DISEASE
     Dosage: 100 MG, 1X/DAY
     Route: 048
     Dates: start: 20070101
  9. RAMIPRIL [Suspect]
     Indication: HYPERTENSION
     Dosage: 5 MG, 2X/DAY
     Route: 048
     Dates: start: 20070101, end: 20080601
  10. FUROSEMIDE [Suspect]
     Dosage: 20 MG, 1X/DAY
     Route: 048
     Dates: start: 20080804, end: 20080807

REACTIONS (9)
  - PRESYNCOPE [None]
  - TACHYCARDIA [None]
  - BLOOD POTASSIUM DECREASED [None]
  - BLOOD CREATININE INCREASED [None]
  - ELECTROCARDIOGRAM ST SEGMENT DEPRESSION [None]
  - HYPOTENSION [None]
  - DYSPNOEA EXERTIONAL [None]
  - BLOOD SODIUM DECREASED [None]
  - DIZZINESS [None]
